FAERS Safety Report 23696400 (Version 1)
Quarter: 2024Q2

REPORT INFORMATION
  Report Type: Spontaneous
  Country: US (occurrence: US)
  Receive Date: 20240402
  Receipt Date: 20240402
  Transmission Date: 20240715
  Serious: No
  Sender: FDA-Public Use
  Company Number: US-TEVA-VS-3172483

PATIENT
  Sex: Male

DRUGS (1)
  1. OXYMORPHONE [Suspect]
     Active Substance: OXYMORPHONE
     Indication: Product used for unknown indication
     Route: 065

REACTIONS (2)
  - Product prescribing issue [Unknown]
  - Drug diversion [Unknown]
